FAERS Safety Report 19201663 (Version 1)
Quarter: 2021Q2

REPORT INFORMATION
  Report Type: Spontaneous
  Country: US (occurrence: US)
  Receive Date: 20210430
  Receipt Date: 20210430
  Transmission Date: 20210717
  Serious: Yes (Other)
  Sender: FDA-Public Use
  Company Number: US-ALVOGEN-2021-ALVOGEN-116935

PATIENT
  Sex: Female

DRUGS (1)
  1. LEVOTHYROXINE. [Suspect]
     Active Substance: LEVOTHYROXINE
     Indication: PRODUCT USED FOR UNKNOWN INDICATION

REACTIONS (8)
  - Drug ineffective [Unknown]
  - Product substitution issue [Unknown]
  - Myalgia [Unknown]
  - Blood cholesterol increased [Unknown]
  - Vision blurred [Unknown]
  - Choking [Unknown]
  - Bone pain [Unknown]
  - Palpitations [Unknown]
